FAERS Safety Report 11035322 (Version 3)
Quarter: 2015Q3

REPORT INFORMATION
  Report Type: Spontaneous
  Country: US (occurrence: US)
  Receive Date: 20150415
  Receipt Date: 20150720
  Transmission Date: 20151125
  Serious: No
  Sender: FDA-Public Use
  Company Number: US-GILEAD-2015-0148414

PATIENT
  Age: 55 Year
  Sex: Female

DRUGS (1)
  1. HARVONI [Suspect]
     Active Substance: LEDIPASVIR\SOFOSBUVIR
     Indication: HEPATITIS C
     Dosage: 1 DF, QD
     Route: 048
     Dates: start: 20140209

REACTIONS (5)
  - Heart rate increased [Unknown]
  - Insomnia [Unknown]
  - Chest pain [Unknown]
  - Tachycardia [Unknown]
  - Palpitations [Unknown]

NARRATIVE: CASE EVENT DATE: 2015
